FAERS Safety Report 8157605-4 (Version None)
Quarter: 2012Q1

REPORT INFORMATION
  Report Type: 
  Country: None (occurrence: None)
  Receive Date: 20120222
  Receipt Date: 20111212
  Transmission Date: 20120608
  Serious: No
  Sender: FDA-Public Use
  Company Number: US-ASTRAZENECA-2011SE75500

PATIENT
  Age: 57 Year
  Sex: Female

DRUGS (27)
  1. REGLAN [Concomitant]
     Indication: MIGRAINE
     Route: 048
  2. CYANOCOBALAMIN [Concomitant]
     Route: 048
  3. WELLBUTRIN XL [Concomitant]
     Route: 048
  4. CRESTOR [Concomitant]
     Route: 048
  5. ASPIR-LOW [Concomitant]
     Route: 048
  6. VITAMIN D [Concomitant]
     Route: 048
  7. PRENATAL PLUS [Concomitant]
     Route: 048
  8. INDERAL LA [Concomitant]
     Route: 048
  9. MICRO-K [Concomitant]
     Route: 048
  10. SULFAMETHOXAZOLE AND TRIMETHOPRIM [Concomitant]
     Dosage: 800-160 MG, ONE TABLET, ONCE DAILY
     Route: 048
  11. INDERAL LA [Concomitant]
     Route: 048
  12. OMEPRAZOLE [Concomitant]
     Route: 048
  13. NORTRIPTYLINE HCL [Concomitant]
     Route: 048
  14. ELMIRON [Concomitant]
     Route: 048
  15. LAMICTAL [Concomitant]
     Dosage: ONE TABLET ON TUE, THUR AND WEEKENDS THEN TWO TABLETS MON, WED, FRI
     Route: 048
  16. FENTANYL [Concomitant]
     Dosage: 12 MCH/HR, ONE PATCH, EVERY 12 HOURS
     Route: 061
  17. VITAMIN B-12 [Concomitant]
     Dosage: 1000 MCG/ML, 1000 MCG, TWICE MONTHLY
     Route: 030
  18. KLONOPIN [Concomitant]
     Route: 048
  19. ACETAMINOPHEN [Concomitant]
     Route: 048
  20. SYNTHROID [Concomitant]
     Route: 048
  21. PHENAZOPYRIDINE HCL TAB [Concomitant]
     Route: 048
  22. MACROBID MACROCRYSTALS MONOHYDRATE [Concomitant]
     Route: 048
  23. SULFAMETHOXAZOLE AND TRIMETHOPRIM [Concomitant]
     Dosage: 400/80 MG, DAILY
     Route: 048
  24. SAVELLA [Concomitant]
     Route: 048
  25. STOOL SOFTNER [Concomitant]
     Dosage: AS DIREDTED PRN
  26. TENORMIN [Suspect]
     Route: 048
  27. CALCIUM AND VITAMIN D [Concomitant]
     Dosage: 1200 MG AND 100 IU, ONE, EVERY DAY
     Route: 048

REACTIONS (3)
  - DRUG HYPERSENSITIVITY [None]
  - URTICARIA [None]
  - OEDEMA [None]
